FAERS Safety Report 14348464 (Version 12)
Quarter: 2025Q3

REPORT INFORMATION
  Report Type: Spontaneous
  Country: US (occurrence: US)
  Receive Date: 20180103
  Receipt Date: 20250926
  Transmission Date: 20251020
  Serious: No
  Sender: BIOGEN
  Company Number: US-BIOGEN-2017BI00503286

PATIENT
  Age: 40 Year
  Sex: Male

DRUGS (2)
  1. TECFIDERA [Suspect]
     Active Substance: DIMETHYL FUMARATE
     Indication: Multiple sclerosis
     Dosage: STARTING DOSE?ALSO START DATE REPORTED AS 14-MAR-2019
     Route: 050
     Dates: start: 20141104, end: 20241024
  2. TECFIDERA [Suspect]
     Active Substance: DIMETHYL FUMARATE
     Dosage: MAINTENANCE DOSE
     Route: 050
     Dates: start: 20190314

REACTIONS (7)
  - Product dose omission issue [Unknown]
  - Balance disorder [Not Recovered/Not Resolved]
  - Muscular weakness [Not Recovered/Not Resolved]
  - Gait disturbance [Not Recovered/Not Resolved]
  - Multiple sclerosis [Unknown]
  - Mobility decreased [Unknown]
  - Fall [Recovered/Resolved]

NARRATIVE: CASE EVENT DATE: 20171001
